FAERS Safety Report 6944581-2 (Version None)
Quarter: 2010Q3

REPORT INFORMATION
  Report Type: 
  Country: None (occurrence: None)
  Receive Date: 20100827
  Receipt Date: 20100805
  Transmission Date: 20110219
  Serious: No
  Sender: FDA-Public Use
  Company Number: US-PFIZER INC-2010073811

PATIENT
  Sex: Female
  Weight: 72 kg

DRUGS (9)
  1. CELEBREX [Suspect]
     Indication: ARTHRITIS
     Dosage: 200 MG, DAILY
     Route: 048
     Dates: start: 20100610
  2. CELEBREX [Suspect]
     Indication: OSTEOARTHRITIS
  3. PREMARIN [Concomitant]
     Indication: OESTROGEN DEFICIENCY
     Dosage: UNK
  4. ISONIAZID [Concomitant]
  5. RESTORIL [Concomitant]
  6. NYSTATIN [Concomitant]
  7. ULTRAM [Concomitant]
  8. TENORMIN [Concomitant]
  9. SYNTHROID [Concomitant]

REACTIONS (2)
  - HYPERSENSITIVITY [None]
  - URTICARIA [None]
